FAERS Safety Report 17845830 (Version 1)
Quarter: 2020Q2

REPORT INFORMATION
  Report Type: Spontaneous
  Country: US (occurrence: US)
  Receive Date: 20200530
  Receipt Date: 20200530
  Transmission Date: 20200714
  Serious: No
  Sender: FDA-Public Use
  Company Number: None

PATIENT
  Age: 60 Year
  Sex: Female

DRUGS (4)
  1. LEVOTHYROXINE. [Suspect]
     Active Substance: LEVOTHYROXINE
     Indication: HYPOTHYROIDISM
     Route: 048
     Dates: start: 20200502
  2. NORVASC [Concomitant]
     Active Substance: AMLODIPINE BESYLATE
  3. DULOXETINE 20MG [Concomitant]
     Active Substance: DULOXETINE
  4. LOSARTAN 25MG [Concomitant]
     Active Substance: LOSARTAN

REACTIONS (3)
  - Alopecia [None]
  - Fatigue [None]
  - Feeling abnormal [None]

NARRATIVE: CASE EVENT DATE: 20200530
